FAERS Safety Report 13667033 (Version 1)
Quarter: 2017Q2

REPORT INFORMATION
  Report Type: Spontaneous
  Country: US (occurrence: US)
  Receive Date: 20170619
  Receipt Date: 20170619
  Transmission Date: 20170830
  Serious: No
  Sender: FDA-Public Use
  Company Number: US-ROCHE-1345462

PATIENT
  Sex: Female

DRUGS (14)
  1. ASPIRIN. [Concomitant]
     Active Substance: ASPIRIN
  2. SERTRALINE [Concomitant]
     Active Substance: SERTRALINE HYDROCHLORIDE
  3. PRAVASTATIN. [Concomitant]
     Active Substance: PRAVASTATIN
  4. XELODA [Suspect]
     Active Substance: CAPECITABINE
     Dosage: IN EVENING, 7 DAYS ON AND 7 DAYS OFF
     Route: 048
     Dates: start: 20131218
  5. GABAPENTIN. [Concomitant]
     Active Substance: GABAPENTIN
  6. MAGNESIUM OXIDE. [Concomitant]
     Active Substance: MAGNESIUM OXIDE
  7. OMEPRAZOLE. [Concomitant]
     Active Substance: OMEPRAZOLE
  8. XELODA [Suspect]
     Active Substance: CAPECITABINE
     Indication: BREAST CANCER FEMALE
     Dosage: IN MORNING, 7 DAYS ON AND 7 DAYS OFF
     Route: 048
     Dates: start: 20131218
  9. TORSEMIDE. [Concomitant]
     Active Substance: TORSEMIDE
  10. PERCOCET [Concomitant]
     Active Substance: ACETAMINOPHEN\OXYCODONE HYDROCHLORIDE
  11. KLOR-CON [Concomitant]
     Active Substance: POTASSIUM CHLORIDE
  12. OXYBUTYNIN [Concomitant]
     Active Substance: OXYBUTYNIN
  13. OXYCODONE/APAP [Concomitant]
     Active Substance: ACETAMINOPHEN\OXYCODONE HYDROCHLORIDE
  14. FERROUS SULFATE. [Concomitant]
     Active Substance: FERROUS SULFATE

REACTIONS (5)
  - Dizziness [Unknown]
  - Nausea [Unknown]
  - Pruritus [Not Recovered/Not Resolved]
  - Nail discolouration [Not Recovered/Not Resolved]
  - Skin discolouration [Not Recovered/Not Resolved]
